FAERS Safety Report 7879509 (Version 2)
Quarter: 2012Q4

REPORT INFORMATION
  Report Type: 
  Country: BR (occurrence: BR)
  Receive Date: 20110331
  Receipt Date: 20121009
  Transmission Date: 20130627
  Serious: Yes (Death, Other)
  Sender: FDA-Public Use
  Company Number: BR-RANBAXY-2011R1-43325

PATIENT
  Age: 7 Year
  Sex: Female

DRUGS (1)
  1. PHENOBARBITAL [Suspect]
     Indication: EPILEPSY
     Dosage: UNK
     Route: 065

REACTIONS (1)
  - Fixed eruption [Recovered/Resolved]
